FAERS Safety Report 8830170 (Version 1)
Quarter: 2012Q4

REPORT INFORMATION
  Report Type: Spontaneous
  Country: GB (occurrence: None)
  Receive Date: 20121004
  Receipt Date: 20121004
  Transmission Date: 20130627
  Serious: Yes (Other)
  Sender: FDA-Public Use
  Company Number: 2012AP003136

PATIENT
  Age: 53 Year
  Sex: Male

DRUGS (3)
  1. SERTRALINE (SERTRALINE) (SERTRALINE) [Suspect]
     Indication: ANXIETY
     Route: 048
     Dates: start: 20120814, end: 20120815
  2. QUETIAPINE (QUETIAPINE) [Concomitant]
  3. LSD (LYSERGIDE) [Concomitant]

REACTIONS (1)
  - Hallucination, visual [None]
